FAERS Safety Report 18866435 (Version 2)
Quarter: 2021Q1

REPORT INFORMATION
  Report Type: Spontaneous
  Country: UY (occurrence: UY)
  Receive Date: 20210209
  Receipt Date: 20210224
  Transmission Date: 20210420
  Serious: Yes (Hospitalization, Other)
  Sender: FDA-Public Use
  Company Number: UY-TAKEDA-2021TUS005354

PATIENT
  Age: 15 Year
  Sex: Female

DRUGS (2)
  1. FIRAZYR [Suspect]
     Active Substance: ICATIBANT ACETATE
     Indication: OEDEMA
     Dosage: 1 PREFILLED SYRINGE IN CRISIS
     Route: 058
     Dates: start: 20210113
  2. FIRAZYR [Suspect]
     Active Substance: ICATIBANT ACETATE
     Indication: OEDEMA
     Dosage: 1 PREFILLED SYRINGE IN CRISIS
     Route: 058
     Dates: start: 20210113

REACTIONS (3)
  - Syncope [Unknown]
  - Hemiplegia [Unknown]
  - Vomiting [Recovering/Resolving]

NARRATIVE: CASE EVENT DATE: 20210121
